FAERS Safety Report 8255102-9 (Version None)
Quarter: 2012Q2

REPORT INFORMATION
  Report Type: 
  Country: None (occurrence: None)
  Receive Date: 20120403
  Receipt Date: 20120328
  Transmission Date: 20120825
  Serious: Yes (Hospitalization)
  Sender: FDA-Public Use
  Company Number: FR-UCBSA-046282

PATIENT
  Age: 41 Year
  Sex: Male

DRUGS (1)
  1. VIMPAT [Suspect]
     Indication: CONVULSION
     Dosage: SINGLE INJECTION
     Route: 042
     Dates: start: 20111029, end: 20111029

REACTIONS (10)
  - INCORRECT DOSE ADMINISTERED [None]
  - ACCIDENTAL OVERDOSE [None]
  - WOUND [None]
  - LOSS OF CONSCIOUSNESS [None]
  - NAUSEA [None]
  - HEAD INJURY [None]
  - ASTHENIA [None]
  - FALL [None]
  - VERTIGO [None]
  - MALAISE [None]
